FAERS Safety Report 19495963 (Version 1)
Quarter: 2021Q3

REPORT INFORMATION
  Report Type: Spontaneous
  Country: DE (occurrence: DE)
  Receive Date: 20210706
  Receipt Date: 20210706
  Transmission Date: 20211014
  Serious: Yes (Hospitalization, Other)
  Sender: FDA-Public Use
  Company Number: DE-TEVA-2021-DE-1929011

PATIENT
  Age: 68 Year
  Sex: Male
  Weight: 70 kg

DRUGS (15)
  1. PREGABALIN. [Concomitant]
     Active Substance: PREGABALIN
     Dosage: 300 MILLIGRAM DAILY; 1?0?1?0,
     Route: 048
  2. METOPROLOL. [Concomitant]
     Active Substance: METOPROLOL
     Dosage: 47.5 MILLIGRAM DAILY; 1?0?0?0
     Route: 048
  3. MIRTAZAPIN [Concomitant]
     Active Substance: MIRTAZAPINE
     Dosage: 15 MILLIGRAM DAILY; 0?0?0?1
     Route: 048
  4. NOVAMINSULFON 500?1A PHARMA [Concomitant]
     Dosage: 500 MG, 40?40?40?40, DROPS
     Route: 048
  5. OXYCODON COMP ? 1 A PHARMA 10 MG/5 MG RETARDTABLETTEN [Concomitant]
     Dosage: 1 DOSAGE FORMS DAILY; 5 | 10 MG, 0?0?0?1
     Route: 048
  6. FOLVERLAN 0,4MG [Concomitant]
     Dosage: .4 MILLIGRAM DAILY;  1?0?0?0
     Route: 048
  7. MCP AL 10 [Concomitant]
     Dosage: 20 MILLIGRAM DAILY; 10 MG, 1?0?1?0
     Route: 048
  8. FERRO SANOL 40MG DRAGEES [Concomitant]
     Dosage: 80 MILLIGRAM DAILY; 1?0?1?0
     Route: 048
  9. PEMETREXED. [Suspect]
     Active Substance: PEMETREXED
     Dosage: REDUCED DOSE ACCORDING TO THE SCHEME, SOLUTION FOR INJECTION / INFUSION
     Route: 042
  10. PANTOPRAZOL [Concomitant]
     Active Substance: PANTOPRAZOLE SODIUM
     Dosage: 40 MILLIGRAM DAILY; 1?0?1?0
     Route: 048
  11. VENLAFAXIN [Concomitant]
     Active Substance: VENLAFAXINE HYDROCHLORIDE
     Dosage: 75 MILLIGRAM DAILY; 1?0?0?0
     Route: 048
  12. CISPLATIN. [Suspect]
     Active Substance: CISPLATIN
     Dosage: ACCORDING TO THE SCHEME, INJECTION / INFUSION SOLUTION
     Route: 042
  13. OXYCODON [Concomitant]
     Active Substance: OXYCODONE
     Dosage: 5 MG, IF NECESSARY
     Route: 048
  14. OXYCODON [Concomitant]
     Active Substance: OXYCODONE
     Dosage: 20 MG, 1?1?0?1, RETARD?TABLETTEN
     Route: 048
  15. ETORICOX?ABZ 60MG [Concomitant]
     Dosage: 60 MILLIGRAM DAILY; 0?1?0?0
     Route: 048

REACTIONS (6)
  - General physical health deterioration [Unknown]
  - Asthenia [Unknown]
  - Nausea [Unknown]
  - Diarrhoea [Unknown]
  - Decreased appetite [Unknown]
  - Haematochezia [Unknown]
